FAERS Safety Report 7196419-9 (Version None)
Quarter: 2010Q4

REPORT INFORMATION
  Report Type: 
  Country: None (occurrence: None)
  Receive Date: 20101223
  Receipt Date: 20101025
  Transmission Date: 20110411
  Serious: No
  Sender: FDA-Public Use
  Company Number: US-AMGEN-USASP2010001373

PATIENT

DRUGS (1)
  1. ENBREL [Suspect]
     Indication: RHEUMATOID ARTHRITIS
     Dosage: 50 MG, QWK
     Dates: start: 20101020

REACTIONS (14)
  - ARTHROPOD STING [None]
  - CONSTIPATION [None]
  - DRY EYE [None]
  - DRY MOUTH [None]
  - FIBROMYALGIA [None]
  - HERPES ZOSTER [None]
  - HYPERSOMNIA [None]
  - INJECTION SITE HAEMORRHAGE [None]
  - INJECTION SITE PAIN [None]
  - INTERVERTEBRAL DISC DEGENERATION [None]
  - MIGRAINE [None]
  - NECK PAIN [None]
  - PAIN IN EXTREMITY [None]
  - PRURITUS [None]
